FAERS Safety Report 19153261 (Version 5)
Quarter: 2021Q2

REPORT INFORMATION
  Report Type: Spontaneous
  Country: US (occurrence: US)
  Receive Date: 20210419
  Receipt Date: 20210611
  Transmission Date: 20210717
  Serious: No
  Sender: FDA-Public Use
  Company Number: US-GLAXOSMITHKLINE-USCH2021019352

PATIENT
  Age: 53 Year
  Sex: Female

DRUGS (1)
  1. ADVIL LIQUI?GELS [Suspect]
     Active Substance: IBUPROFEN
     Indication: HEADACHE
     Dosage: UNK
     Dates: start: 20210411, end: 20210411

REACTIONS (8)
  - Headache [Recovering/Resolving]
  - Product complaint [Unknown]
  - Pain [Recovering/Resolving]
  - Tongue discomfort [Recovering/Resolving]
  - Wrong technique in product usage process [Unknown]
  - Oropharyngeal pain [Recovering/Resolving]
  - Abdominal discomfort [Recovering/Resolving]
  - Nervousness [Unknown]

NARRATIVE: CASE EVENT DATE: 20210411
